FAERS Safety Report 21166320 (Version 1)
Quarter: 2022Q3

REPORT INFORMATION
  Report Type: Spontaneous
  Country: PR (occurrence: PR)
  Receive Date: 20220803
  Receipt Date: 20220803
  Transmission Date: 20221026
  Serious: No
  Sender: FDA-Public Use
  Company Number: PR-PFIZER INC-202201021777

PATIENT
  Age: 24 Year
  Sex: Female

DRUGS (1)
  1. PAXLOVID [Suspect]
     Active Substance: NIRMATRELVIR\RITONAVIR
     Indication: COVID-19 treatment
     Dosage: UNK
     Dates: start: 20220721, end: 20220725

REACTIONS (1)
  - Symptom recurrence [Not Recovered/Not Resolved]

NARRATIVE: CASE EVENT DATE: 20220730
